FAERS Safety Report 17077761 (Version 1)
Quarter: 2019Q4

REPORT INFORMATION
  Report Type: Spontaneous
  Country: PL (occurrence: PL)
  Receive Date: 20191126
  Receipt Date: 20191126
  Transmission Date: 20200122
  Serious: Yes (Death, Other)
  Sender: FDA-Public Use
  Company Number: PL-AMGEN-POLSP2019193733

PATIENT
  Age: 22 Year
  Sex: Male

DRUGS (7)
  1. BLINATUMOMAB [Suspect]
     Active Substance: BLINATUMOMAB
     Dosage: 28 MICROGRAM, QD, ON 8-28 DAYS
     Route: 065
  2. BLINATUMOMAB [Suspect]
     Active Substance: BLINATUMOMAB
     Indication: ACUTE LYMPHOCYTIC LEUKAEMIA RECURRENT
     Dosage: 9 MICROGRAM, QD, 1-7 DAYS
     Route: 065
  3. ADRIAMYCIN [Concomitant]
     Active Substance: DOXORUBICIN HYDROCHLORIDE
  4. DEXAMETHASONE. [Concomitant]
     Active Substance: DEXAMETHASONE
  5. CYCLOPHOSPHAMIDE. [Concomitant]
     Active Substance: CYCLOPHOSPHAMIDE
  6. BUSULFAN. [Concomitant]
     Active Substance: BUSULFAN
  7. VINCRISTINE [Concomitant]
     Active Substance: VINCRISTINE

REACTIONS (1)
  - Death [Fatal]
